FAERS Safety Report 22179756 (Version 1)
Quarter: 2023Q2

REPORT INFORMATION
  Report Type: Report from Study
  Country: KR (occurrence: KR)
  Receive Date: 20230406
  Receipt Date: 20230406
  Transmission Date: 20230721
  Serious: Yes (Hospitalization)
  Sender: FDA-Public Use
  Company Number: KR-002147023-PHHO2018KR001317

PATIENT
  Age: 64 Year
  Sex: Female
  Weight: 50 kg

DRUGS (5)
  1. ASCIMINIB [Suspect]
     Active Substance: ASCIMINIB
     Indication: Chronic myeloid leukaemia
     Dosage: 200 MG, BID
     Route: 048
     Dates: start: 20140624, end: 20180119
  2. LASIX [Concomitant]
     Active Substance: FUROSEMIDE
     Indication: Fluid imbalance
     Dosage: 20 MG, PRN
     Route: 042
     Dates: start: 20180122, end: 20180122
  3. LASIX [Concomitant]
     Active Substance: FUROSEMIDE
     Dosage: 20 MG, PRN
     Route: 042
     Dates: start: 20180123, end: 20180123
  4. LIPITOR [Concomitant]
     Active Substance: ATORVASTATIN CALCIUM
     Indication: Hyperlipidaemia
     Dosage: 10 MG, QD
     Route: 048
     Dates: start: 20161011, end: 20180119
  5. ALBUMIN HUMAN [Concomitant]
     Active Substance: ALBUMIN HUMAN
     Indication: Fluid imbalance
     Dosage: 100 ML, QD
     Route: 042
     Dates: start: 20180124, end: 20180124

REACTIONS (2)
  - Angina pectoris [Recovering/Resolving]
  - Atrial fibrillation [Not Recovered/Not Resolved]

NARRATIVE: CASE EVENT DATE: 20180114
